FAERS Safety Report 17655621 (Version 1)
Quarter: 2020Q2

REPORT INFORMATION
  Report Type: Spontaneous
  Country: US (occurrence: US)
  Receive Date: 20200410
  Receipt Date: 20200410
  Transmission Date: 20200713
  Serious: No
  Sender: FDA-Public Use
  Company Number: US-GLAXOSMITHKLINE-US2020061347

PATIENT
  Age: 68 Year
  Sex: Female

DRUGS (3)
  1. KETO (NOS) [Concomitant]
     Indication: PRODUCT USED FOR UNKNOWN INDICATION
     Dosage: UNK
  2. ALLI [Suspect]
     Active Substance: ORLISTAT
     Indication: WEIGHT LOSS DIET
     Dosage: UNK
     Dates: start: 20200402
  3. ALLI [Suspect]
     Active Substance: ORLISTAT
     Dosage: UNK

REACTIONS (6)
  - Suspected counterfeit product [Unknown]
  - Treatment noncompliance [Unknown]
  - Faeces discoloured [Unknown]
  - Steatorrhoea [Unknown]
  - Drug ineffective [Unknown]
  - Product complaint [Unknown]

NARRATIVE: CASE EVENT DATE: 20200402
